FAERS Safety Report 8332590-0 (Version None)
Quarter: 2012Q2

REPORT INFORMATION
  Report Type: 
  Country: None (occurrence: None)
  Receive Date: 20120503
  Receipt Date: 20120427
  Transmission Date: 20120825
  Serious: Yes (Hospitalization)
  Sender: FDA-Public Use
  Company Number: US-BAYER-2011-067715

PATIENT
  Age: 28 Year
  Sex: Female
  Weight: 76 kg

DRUGS (5)
  1. DROSPIRENONE AND ETHINYL ESTRADIOL [Suspect]
     Indication: CONTRACEPTION
     Dosage: UNK
     Dates: start: 20090701, end: 20091201
  2. IRON PREPARATIONS [Concomitant]
     Dosage: 325 MG, BID
     Dates: start: 20091215
  3. TYLENOL (CAPLET) [Concomitant]
     Indication: PLEURITIC PAIN
  4. DROSPIRENONE AND ETHINYL ESTRADIOL [Suspect]
     Indication: PREMENSTRUAL SYNDROME
  5. INDOMETHACIN [Concomitant]
     Indication: OEDEMA PERIPHERAL
     Dosage: 25 MG, TID
     Route: 048
     Dates: start: 20091128, end: 20091215

REACTIONS (4)
  - PULMONARY EMBOLISM [None]
  - INJURY [None]
  - PAIN [None]
  - DEPRESSION [None]
